FAERS Safety Report 8221290 (Version 10)
Quarter: 2014Q3

REPORT INFORMATION
  Report Type: Spontaneous
  Country: JP (occurrence: JP)
  Receive Date: 20111102
  Receipt Date: 20140725
  Transmission Date: 20150326
  Serious: Yes (Hospitalization, Other)
  Sender: FDA-Public Use
  Company Number: PHHY2011JP95602

PATIENT
  Age: 36 Year
  Sex: Female
  Weight: 45 kg

DRUGS (12)
  1. ONCOVIN [Concomitant]
     Active Substance: VINCRISTINE SULFATE
     Indication: ACUTE BIPHENOTYPIC LEUKAEMIA
     Dosage: 1.9 MG, UNK
     Route: 042
     Dates: start: 20110315
  2. POLYMYXIN B [Concomitant]
     Active Substance: POLYMYXIN B
     Dosage: 3000000 IU, UNK
     Route: 048
     Dates: start: 20110315, end: 20110412
  3. RABEPRAZOLE SODIUM. [Concomitant]
     Active Substance: RABEPRAZOLE SODIUM
     Dosage: 10 MG, UNK
     Route: 048
     Dates: start: 20110315, end: 20110510
  4. SERTRALINE [Suspect]
     Active Substance: SERTRALINE HYDROCHLORIDE
     Dosage: 100 MG, UNK
  5. BAKTAR [Concomitant]
     Active Substance: SULFAMETHOXAZOLE\TRIMETHOPRIM
     Dosage: 1 DF, UNK
     Route: 048
     Dates: start: 20110315, end: 20110510
  6. GLIVEC [Suspect]
     Active Substance: IMATINIB MESYLATE
     Indication: ACUTE BIPHENOTYPIC LEUKAEMIA
     Dosage: 600 MG, DAILY
     Route: 048
     Dates: start: 20110322, end: 20110509
  7. JZOLOFT [Concomitant]
     Active Substance: SERTRALINE HYDROCHLORIDE
     Dosage: 100 MG, UNK
     Route: 048
     Dates: start: 20110311
  8. ZYLORIC [Concomitant]
     Active Substance: ALLOPURINOL
     Dosage: 300 MG, UNK
     Route: 048
     Dates: start: 20110311, end: 20110412
  9. ONCOVIN [Concomitant]
     Active Substance: VINCRISTINE SULFATE
     Dosage: 1.9 MG, UNK
     Route: 042
     Dates: end: 20110329
  10. ITRIZOLE [Concomitant]
     Active Substance: ITRACONAZOLE
     Dosage: 200 MG, UNK
     Route: 048
     Dates: start: 20110315, end: 20110510
  11. ONCOVIN [Concomitant]
     Active Substance: VINCRISTINE SULFATE
     Dosage: 1.9 MG, UNK
     Route: 042
  12. PREDONINE [Concomitant]
     Active Substance: PREDNISOLONE\PREDNISOLONE ACETATE\PREDNISOLONE SODIUM SUCCINATE
     Indication: ACUTE BIPHENOTYPIC LEUKAEMIA
     Dosage: 85 MG, UNK
     Route: 048
     Dates: start: 20110315, end: 20110414

REACTIONS (3)
  - Gastric antral vascular ectasia [Recovered/Resolved]
  - Abdominal pain upper [Unknown]
  - Anaemia [Unknown]

NARRATIVE: CASE EVENT DATE: 20110509
